FAERS Safety Report 11810986 (Version 1)
Quarter: 2015Q4

REPORT INFORMATION
  Report Type: Spontaneous
  Country: US (occurrence: US)
  Receive Date: 20151208
  Receipt Date: 20151208
  Transmission Date: 20160305
  Serious: No
  Sender: FDA-Public Use
  Company Number: US-HORIZON-RAV-0111-2015

PATIENT
  Age: 46 Year
  Sex: Female

DRUGS (1)
  1. RAVICTI [Suspect]
     Active Substance: GLYCEROL PHENYLBUTYRATE
     Indication: UREA CYCLE ENZYME DEFICIENCY
     Dosage: 3.4 ML TID

REACTIONS (1)
  - Decreased appetite [Unknown]
